FAERS Safety Report 20456464 (Version 1)
Quarter: 2022Q1

REPORT INFORMATION
  Report Type: Spontaneous
  Country: US (occurrence: US)
  Receive Date: 20220210
  Receipt Date: 20220210
  Transmission Date: 20220423
  Serious: Yes (Life-Threatening, Other)
  Sender: FDA-Public Use
  Company Number: US-PFIZER INC-202200186819

PATIENT
  Age: 63 Year
  Sex: Female

DRUGS (1)
  1. DESVENLAFAXINE SUCCINATE [Suspect]
     Active Substance: DESVENLAFAXINE SUCCINATE
     Dosage: UNK

REACTIONS (9)
  - Blood pressure decreased [Unknown]
  - Loss of consciousness [Unknown]
  - Coma [Unknown]
  - Drug ineffective [Unknown]
  - Feeling abnormal [Unknown]
  - Crying [Unknown]
  - Somnolence [Unknown]
  - Lethargy [Unknown]
  - Loss of personal independence in daily activities [Unknown]
